FAERS Safety Report 4306803-6 (Version None)
Quarter: 2004Q1

REPORT INFORMATION
  Report Type: 
  Country: None (occurrence: None)
  Receive Date: 20040225
  Receipt Date: 20040213
  Transmission Date: 20041129
  Serious: Yes (Death)
  Sender: FDA-Public Use
  Company Number: USA-2003-0007633

PATIENT
  Age: 40 Year
  Sex: Male
  Weight: 99.8 kg

DRUGS (7)
  1. OXYCODONE HCL [Suspect]
  2. HYDROMORPHONE HYDROCHLORIDE [Suspect]
  3. VICODIN [Suspect]
  4. TRAMADOL (TRAMADOL) [Suspect]
  5. DIHYDROCODEINE (DIHYDROCODEINE) [Suspect]
  6. CAFFEINE (CAFFEINE) [Suspect]
  7. LIDOCAINE [Suspect]

REACTIONS (19)
  - ARRHYTHMIA [None]
  - ARTERIAL OCCLUSIVE DISEASE [None]
  - BENIGN PROSTATIC HYPERPLASIA [None]
  - BLOOD POTASSIUM INCREASED [None]
  - BLOOD SODIUM INCREASED [None]
  - BRAIN OEDEMA [None]
  - CARDIO-RESPIRATORY ARREST [None]
  - CARDIOMEGALY [None]
  - CARDIOMYOPATHY [None]
  - COMA [None]
  - CORONARY ARTERY ATHEROSCLEROSIS [None]
  - FALL [None]
  - HEPATIC CIRRHOSIS [None]
  - HEPATIC CONGESTION [None]
  - HEPATIC STEATOSIS [None]
  - HEPATOMEGALY [None]
  - MYOCARDIAL FIBROSIS [None]
  - MYOCARDIAL ISCHAEMIA [None]
  - PULMONARY OEDEMA [None]
